FAERS Safety Report 13609481 (Version 1)
Quarter: 2017Q2

REPORT INFORMATION
  Report Type: Report from Study
  Country: US (occurrence: US)
  Receive Date: 20170602
  Receipt Date: 20170602
  Transmission Date: 20170830
  Serious: Yes (Death)
  Sender: FDA-Public Use
  Company Number: US-VIFOR (INTERNATIONAL) INC.-VIT-2017-06187

PATIENT
  Age: 74 Year
  Sex: Female

DRUGS (6)
  1. LIDOCAINE. [Concomitant]
     Active Substance: LIDOCAINE
  2. BRIMONIDINE [Concomitant]
     Active Substance: BRIMONIDINE TARTRATE
  3. VELTASSA [Suspect]
     Active Substance: PATIROMER
     Indication: HYPERKALAEMIA
     Route: 048
     Dates: start: 20160624
  4. TRAMADOL. [Concomitant]
     Active Substance: TRAMADOL
  5. HYDROXYZINE [Concomitant]
     Active Substance: HYDROXYZINE HYDROCHLORIDE
  6. HYDRALAZINE [Concomitant]
     Active Substance: HYDRALAZINE HYDROCHLORIDE

REACTIONS (1)
  - Death [Fatal]

NARRATIVE: CASE EVENT DATE: 20170528
